FAERS Safety Report 8470496-7 (Version None)
Quarter: 2012Q2

REPORT INFORMATION
  Report Type: 
  Country: None (occurrence: None)
  Receive Date: 20120627
  Receipt Date: 20110608
  Transmission Date: 20120825
  Serious: No
  Sender: FDA-Public Use
  Company Number: US-MYLANLABS-2011S1011958

PATIENT
  Age: 74 Year
  Sex: Male
  Weight: 76.66 kg

DRUGS (4)
  1. BUMEX [Concomitant]
  2. ALDACTONE [Concomitant]
  3. PREDNISONE TAB [Concomitant]
  4. PERFOROMIST [Suspect]
     Indication: CHRONIC OBSTRUCTIVE PULMONARY DISEASE
     Route: 055
     Dates: start: 20110506, end: 20110608

REACTIONS (2)
  - INSOMNIA [None]
  - DYSPNOEA [None]
